FAERS Safety Report 7563232-X (Version None)
Quarter: 2011Q2

REPORT INFORMATION
  Report Type: 
  Country: None (occurrence: None)
  Receive Date: 20110615
  Receipt Date: 20110615
  Transmission Date: 20111010
  Serious: Yes (Hospitalization, Other)
  Sender: FDA-Public Use
  Company Number: 2009SP033450

PATIENT
  Age: 29 Year
  Sex: Female
  Weight: 127.0072 kg

DRUGS (3)
  1. TYLENOL-500 [Concomitant]
  2. NUVARING [Suspect]
     Indication: CONTRACEPTION
     Dates: start: 20050901, end: 20071028
  3. NUVARING [Suspect]
     Indication: MENOMETRORRHAGIA
     Dates: start: 20050901, end: 20071028

REACTIONS (10)
  - IRON DEFICIENCY ANAEMIA [None]
  - PULMONARY EMBOLISM [None]
  - JOINT SPRAIN [None]
  - CERVICAL CYST [None]
  - DEEP VEIN THROMBOSIS [None]
  - PREGNANCY WITH CONTRACEPTIVE DEVICE [None]
  - VAGINITIS BACTERIAL [None]
  - ABORTION SPONTANEOUS [None]
  - ABORTION MISSED [None]
  - PALPITATIONS [None]
